FAERS Safety Report 5745288-X (Version None)
Quarter: 2008Q2

REPORT INFORMATION
  Report Type: 
  Country: None (occurrence: None)
  Receive Date: 20080521
  Receipt Date: 20080515
  Transmission Date: 20081010
  Serious: Yes (Other)
  Sender: FDA-Public Use
  Company Number: US-JNJFOC-20080503347

PATIENT

DRUGS (2)
  1. RAZADYNE [Suspect]
     Indication: DRUG USE FOR UNKNOWN INDICATION
  2. ROZEREM [Suspect]
     Indication: DRUG USE FOR UNKNOWN INDICATION
     Route: 048

REACTIONS (1)
  - DRUG DISPENSING ERROR [None]
